FAERS Safety Report 14377499 (Version 4)
Quarter: 2018Q1

REPORT INFORMATION
  Report Type: Report from Study
  Country: DE (occurrence: DE)
  Receive Date: 20180111
  Receipt Date: 20180223
  Transmission Date: 20180509
  Serious: Yes (Other)
  Sender: FDA-Public Use
  Company Number: DE-PFIZER INC-2018010598

PATIENT
  Sex: Female
  Weight: 63.7 kg

DRUGS (7)
  1. IBUPROFEN. [Concomitant]
     Active Substance: IBUPROFEN
     Dosage: 600 MG, UNK
  2. AFINITOR [Suspect]
     Active Substance: EVEROLIMUS
     Dosage: 5 MG, 1X/DAY (QD)
     Route: 048
     Dates: start: 20141121, end: 20170302
  3. AFINITOR [Suspect]
     Active Substance: EVEROLIMUS
     Indication: BREAST CANCER METASTATIC
     Dosage: 5 MG, 1X/DAY (QD)
     Route: 048
  4. ZOPICLODURA [Concomitant]
     Active Substance: ZOPICLONE
     Dosage: 7.5 MG, UNK
  5. PALLADON [Concomitant]
     Active Substance: HYDROMORPHONE
     Dosage: 8 MG, UNK
  6. EXEMESTANE. [Suspect]
     Active Substance: EXEMESTANE
     Indication: BREAST CANCER METASTATIC
     Dosage: 25 MG, 1X/DAY (QD)
     Route: 048
     Dates: start: 20141121
  7. TRANSTEC [Concomitant]
     Active Substance: BUPRENORPHINE
     Dosage: 87.5 UG/HR, UNK

REACTIONS (11)
  - Erysipelas [Recovered/Resolved]
  - Pain in extremity [Recovered/Resolved]
  - Pruritus generalised [Recovered/Resolved]
  - Musculoskeletal disorder [Unknown]
  - Erysipelas [Recovered/Resolved]
  - Fatigue [Not Recovered/Not Resolved]
  - Erysipelas [Recovered/Resolved]
  - Musculoskeletal pain [Recovered/Resolved]
  - Pain in extremity [Recovered/Resolved]
  - Erysipelas [Recovered/Resolved]
  - Lymphoedema [Unknown]

NARRATIVE: CASE EVENT DATE: 201502
